FAERS Safety Report 26009433 (Version 2)
Quarter: 2025Q4

REPORT INFORMATION
  Report Type: Spontaneous
  Country: US (occurrence: US)
  Receive Date: 20251107
  Receipt Date: 20251125
  Transmission Date: 20260117
  Serious: No
  Sender: LEO PHARM
  Company Number: US-LEO Pharma-384031

PATIENT
  Age: 51 Year
  Sex: Female

DRUGS (1)
  1. ADBRY [Suspect]
     Active Substance: TRALOKINUMAB-LDRM
     Indication: Eczema
     Dosage: INJECT TWO 300 MG PENS UNDER THE SKIN ON DAY 1 (10/15/2025), THEN ONE 300 MG PEN UNDER THE SKIN EVER
     Route: 058
     Dates: start: 20251015

REACTIONS (3)
  - Pruritus [Unknown]
  - Rash [Unknown]
  - Eczema [Unknown]
